FAERS Safety Report 19420350 (Version 1)
Quarter: 2021Q2

REPORT INFORMATION
  Report Type: Spontaneous
  Country: US (occurrence: US)
  Receive Date: 20210616
  Receipt Date: 20210616
  Transmission Date: 20210717
  Serious: Yes (Other)
  Sender: FDA-Public Use
  Company Number: US-LUPIN PHARMACEUTICALS INC.-2021-09440

PATIENT
  Sex: Female

DRUGS (2)
  1. MISOPROSTOL. [Suspect]
     Active Substance: MISOPROSTOL
     Indication: ABORTION
     Dosage: UNK (RECEIVED MISOPROSTOL AT 6 WEEKS GESTATION)
     Route: 065
  2. METHOTREXATE. [Suspect]
     Active Substance: METHOTREXATE
     Indication: ABORTION INDUCED
     Dosage: UNK (RECEIVED METHOTREXATE AT 6 WEEKS GESTATION)
     Route: 065

REACTIONS (2)
  - Induced abortion failed [Unknown]
  - Exposure during pregnancy [Unknown]
